FAERS Safety Report 8598392-5 (Version None)
Quarter: 2012Q3

REPORT INFORMATION
  Report Type: 
  Country: None (occurrence: None)
  Receive Date: 20120816
  Receipt Date: 20120807
  Transmission Date: 20120928
  Serious: Yes (Other)
  Sender: FDA-Public Use
  Company Number: US-ALEXION-A201201309

PATIENT
  Sex: Female
  Weight: 58.9 kg

DRUGS (7)
  1. SOLIRIS [Suspect]
     Indication: PAROXYSMAL NOCTURNAL HAEMOGLOBINURIA
     Dosage: 900 MG, Q2W
     Route: 042
     Dates: start: 20100909
  2. VITAMIN D3 AND MAGNESIUM [Concomitant]
     Dosage: UNK, QD
     Route: 048
  3. TRAMADOL [Concomitant]
     Indication: PAIN
     Dosage: UNK, PRN
     Route: 048
  4. VICODIN [Concomitant]
     Indication: PAIN
     Dosage: UNK, PRN
     Route: 048
  5. CYCLOSPORINE [Concomitant]
     Dosage: 200 MG, QD HS
     Route: 048
  6. FOLIC ACID [Concomitant]
     Dosage: 1 MG, QD
     Route: 048
  7. ACTONEL [Concomitant]
     Indication: OSTEOPENIA
     Dosage: 150 MG, Q MONTH

REACTIONS (7)
  - INTERVERTEBRAL DISC PROTRUSION [None]
  - DEPRESSION [None]
  - FATIGUE [None]
  - NUCLEAR MAGNETIC RESONANCE IMAGING ABNORMAL [None]
  - BACK PAIN [None]
  - DEVICE BREAKAGE [None]
  - OSTEOPOROSIS [None]
